FAERS Safety Report 20430262 (Version 2)
Quarter: 2022Q3

REPORT INFORMATION
  Report Type: Spontaneous
  Country: US (occurrence: None)
  Receive Date: 20220204
  Receipt Date: 20220828
  Transmission Date: 20221027
  Serious: Yes (Other)
  Sender: FDA-Public Use
  Company Number: US-ROCHE-3014571

PATIENT
  Age: 68 Year
  Sex: Female

DRUGS (2)
  1. AVASTIN [Suspect]
     Active Substance: BEVACIZUMAB
     Indication: Product used for unknown indication
     Route: 065
  2. LONSURF [Suspect]
     Active Substance: TIPIRACIL HYDROCHLORIDE\TRIFLURIDINE
     Indication: Colon cancer
     Dosage: 75 MG TWICE DAILY TAKEN ORALLY?CYCLE 1: 75 MG, 1 IN 0.5 D
     Route: 048
     Dates: start: 20210804, end: 202110

REACTIONS (2)
  - Disease progression [Unknown]
  - Haemorrhage urinary tract [Unknown]
